FAERS Safety Report 17430220 (Version 3)
Quarter: 2021Q3

REPORT INFORMATION
  Report Type: Spontaneous
  Country: US (occurrence: US)
  Receive Date: 20200218
  Receipt Date: 20210811
  Transmission Date: 20211014
  Serious: Yes (Hospitalization)
  Sender: FDA-Public Use
  Company Number: US-PFIZER INC-2020069674

PATIENT
  Age: 63 Year
  Sex: Female
  Weight: 155 kg

DRUGS (3)
  1. IBRANCE [Suspect]
     Active Substance: PALBOCICLIB
     Dosage: 125 MG, CYCLIC (21 DAYS)
     Route: 048
     Dates: start: 202001
  2. IBRANCE [Suspect]
     Active Substance: PALBOCICLIB
     Dosage: 125 MG, CYCLIC (DAILY, DAYS 1?21 THEN 7 DAYS OFF)
     Route: 048
     Dates: start: 202001, end: 20200211
  3. IBRANCE [Suspect]
     Active Substance: PALBOCICLIB
     Indication: BREAST CANCER METASTATIC
     Dosage: 100 MG
     Dates: start: 20170707

REACTIONS (8)
  - Pancytopenia [Unknown]
  - White blood cell count decreased [Unknown]
  - Pneumocystis jirovecii pneumonia [Unknown]
  - Full blood count decreased [Unknown]
  - Haemoglobin decreased [Unknown]
  - Platelet count decreased [Unknown]
  - Alopecia [Unknown]
  - Stomatitis [Unknown]

NARRATIVE: CASE EVENT DATE: 202002
